FAERS Safety Report 16315749 (Version 3)
Quarter: 2021Q2

REPORT INFORMATION
  Report Type: Report from Study
  Country: CR (occurrence: CR)
  Receive Date: 20190515
  Receipt Date: 20210415
  Transmission Date: 20210716
  Serious: Yes (Other)
  Sender: FDA-Public Use
  Company Number: PHHY2019CR106132

PATIENT
  Sex: Male
  Weight: 74.83 kg

DRUGS (5)
  1. DIOVAN [Suspect]
     Active Substance: VALSARTAN
     Dosage: 80 MG, UNK, AGAIN, SINCE ONE YEAR AND A HALF
     Route: 065
  2. EXFORGE [Suspect]
     Active Substance: AMLODIPINE BESYLATE\VALSARTAN
     Indication: PRODUCT USED FOR UNKNOWN INDICATION
     Dosage: (AMLODIPINE 5 MG, VALSARTAN 320 MG) (14 TABLETS)
     Route: 065
  3. DIOVAN [Suspect]
     Active Substance: VALSARTAN
     Indication: PRODUCT USED FOR UNKNOWN INDICATION
     Dosage: 80 MG, UNK
     Route: 065
  4. DIOVAN [Suspect]
     Active Substance: VALSARTAN
     Dosage: 320 MG, BID
     Route: 065
  5. EXFORGE [Suspect]
     Active Substance: AMLODIPINE BESYLATE\VALSARTAN
     Dosage: (AMLODIPINE 5 MG, VALSARTAN 320 MG) (28 TABLETS)
     Route: 065

REACTIONS (5)
  - Hypertensive crisis [Recovering/Resolving]
  - Blood potassium increased [Recovering/Resolving]
  - Hypoacusis [Unknown]
  - Blood potassium decreased [Unknown]
  - Incorrect dose administered [Unknown]
